FAERS Safety Report 10694027 (Version 1)
Quarter: 2015Q1

REPORT INFORMATION
  Report Type: Spontaneous
  Country: US (occurrence: US)
  Receive Date: 20150106
  Receipt Date: 20150106
  Transmission Date: 20150721
  Serious: No
  Sender: FDA-Public Use
  Company Number: US-GLAXOSMITHKLINE-US2015GSK000571

PATIENT
  Age: 63 Year
  Sex: Female

DRUGS (1)
  1. LAMICTAL [Suspect]
     Active Substance: LAMOTRIGINE
     Indication: GENERALISED TONIC-CLONIC SEIZURE
     Dosage: 100 MG, U
     Dates: start: 20121221

REACTIONS (4)
  - Gastric polyps [Unknown]
  - Cyst removal [Unknown]
  - Cyst [Unknown]
  - Gastric polypectomy [Unknown]

NARRATIVE: CASE EVENT DATE: 201410
